FAERS Safety Report 8914269 (Version 1)
Quarter: 2012Q4

REPORT INFORMATION
  Report Type: Report from Study
  Country: CA (occurrence: CA)
  Receive Date: 20121119
  Receipt Date: 20121119
  Transmission Date: 20130627
  Serious: Yes (Other)
  Sender: FDA-Public Use
  Company Number: CA-JNJFOC-20121105629

PATIENT
  Age: 21 Year
  Sex: Female
  Weight: 54 kg

DRUGS (8)
  1. REMICADE [Suspect]
     Indication: CROHN^S DISEASE
     Route: 042
     Dates: start: 20120417
  2. ASACOL [Concomitant]
     Route: 065
  3. NICOTINE PATCH [Concomitant]
     Route: 065
  4. CODEINE [Concomitant]
     Route: 065
  5. FERROUS FUMARATE [Concomitant]
     Route: 065
  6. FLAGYL [Concomitant]
     Route: 065
  7. ALL OTHER THERAPEUTIC PRODUCTS [Concomitant]
     Route: 065
  8. CIPRALEX [Concomitant]
     Route: 065

REACTIONS (5)
  - Diarrhoea haemorrhagic [Unknown]
  - Muscle spasms [Unknown]
  - Vomiting [Unknown]
  - Weight decreased [Unknown]
  - Pallor [Unknown]
